FAERS Safety Report 10058502 (Version 1)
Quarter: 2014Q2

REPORT INFORMATION
  Report Type: Spontaneous
  Country: DE (occurrence: DE)
  Receive Date: 20140404
  Receipt Date: 20140404
  Transmission Date: 20141212
  Serious: Yes (Other)
  Sender: FDA-Public Use
  Company Number: DE-DRREDDYS-GER/GER/14/0039383

PATIENT
  Age: 26 Year
  Sex: Female
  Weight: 75 kg

DRUGS (3)
  1. LAMOTRIGINE [Suspect]
     Indication: EPILEPSY
     Route: 048
     Dates: start: 20120608, end: 20130307
  2. ORFIRIL [Suspect]
     Indication: EPILEPSY
     Dosage: 800 MG/D / DOSAGE: 300-0-500 MG/D
     Route: 048
     Dates: start: 20120608, end: 20130307
  3. FOLSAURE [Concomitant]
     Indication: PROPHYLAXIS OF NEURAL TUBE DEFECT
     Route: 048

REACTIONS (4)
  - Gestational diabetes [Unknown]
  - Polyhydramnios [Unknown]
  - Caesarean section [Unknown]
  - Exposure during pregnancy [Unknown]
